FAERS Safety Report 22041720 (Version 1)
Quarter: 2023Q1

REPORT INFORMATION
  Report Type: Spontaneous
  Country: US (occurrence: None)
  Receive Date: 20230224
  Receipt Date: 20230224
  Transmission Date: 20230417
  Serious: Yes (Hospitalization)
  Sender: FDA-Public Use
  Company Number: None

PATIENT
  Sex: Female

DRUGS (6)
  1. SYMBICORT [Suspect]
     Active Substance: BUDESONIDE\FORMOTEROL FUMARATE DIHYDRATE
     Indication: Cystic fibrosis
     Dosage: 160-4.5 MCG/ACT INHALATION??INHALE 2 PUFFS BY MOUTH TWICE DAILY?
     Route: 055
     Dates: start: 20150703
  2. ALBUTEROL [Concomitant]
     Active Substance: ALBUTEROL
  3. COMPLETE FORM SOFTGEL [Concomitant]
  4. MONTELUKAST SOD 10MG TAB [Concomitant]
  5. PANCREAZE 21,000 UNIT CAP DR [Concomitant]
  6. PERCOCET TAB 5-325MG [Concomitant]

REACTIONS (1)
  - Maternal exposure during pregnancy [None]
